FAERS Safety Report 13833477 (Version 3)
Quarter: 2017Q3

REPORT INFORMATION
  Report Type: Report from Study
  Country: US (occurrence: US)
  Receive Date: 20170803
  Receipt Date: 20170828
  Transmission Date: 20171127
  Serious: Yes (Other)
  Sender: FDA-Public Use
  Company Number: US-ROCHE-1972624

PATIENT

DRUGS (2)
  1. RITUXIMAB. [Suspect]
     Active Substance: RITUXIMAB
     Indication: B-CELL LYMPHOMA RECURRENT
     Dosage: ON DAYS 1, 8, 15, AND 22 OF CYCLE 1 FOR UP TO 16 CYCLES STARTING ON DAY 2 OF CYCLE 1
     Route: 042
  2. PEMBROLIZUMAB. [Suspect]
     Active Substance: PEMBROLIZUMAB
     Indication: B-CELL LYMPHOMA RECURRENT
     Dosage: FOR UP TO 16 CYCLES STARTING ON DAY 2 OF CYCLE 1
     Route: 042

REACTIONS (4)
  - Nausea [Unknown]
  - Meningitis aseptic [Unknown]
  - Infusion related reaction [Unknown]
  - Pneumonia [Unknown]
